FAERS Safety Report 9454390 (Version 2)
Quarter: 2013Q3

REPORT INFORMATION
  Report Type: Spontaneous
  Country: JP (occurrence: JP)
  Receive Date: 20130812
  Receipt Date: 20130829
  Transmission Date: 20140515
  Serious: Yes (Life-Threatening, Hospitalization)
  Sender: FDA-Public Use
  Company Number: JP-ELI_LILLY_AND_COMPANY-JP201308001006

PATIENT
  Age: 77 Year
  Sex: Female
  Weight: 46 kg

DRUGS (14)
  1. ALIMTA [Suspect]
     Indication: NON-SMALL CELL LUNG CANCER
     Dosage: 680 MG/M2, UNK
     Route: 042
     Dates: start: 20130608, end: 20130718
  2. ALIMTA [Suspect]
     Dosage: 680 MG/M2, UNK
     Route: 042
  3. PARAPLATIN [Suspect]
     Indication: NON-SMALL CELL LUNG CANCER
     Dosage: 410 MG/M2, UNK
     Route: 042
     Dates: start: 20130608, end: 20130718
  4. AVASTIN [Suspect]
     Indication: NON-SMALL CELL LUNG CANCER
     Dosage: 700 MG/M2, UNK
     Route: 042
     Dates: start: 20130608, end: 20130718
  5. VITAMIN B12 [Concomitant]
     Route: 030
  6. FOLIAMIN [Concomitant]
     Route: 065
  7. DEXART [Concomitant]
     Route: 065
  8. FAMOSTAGINE [Concomitant]
     Route: 048
  9. MOHRUS [Concomitant]
     Route: 062
  10. PANTETHINE [Concomitant]
     Route: 048
  11. MAGNESIUM OXIDE [Concomitant]
     Route: 048
  12. EMEND [Concomitant]
     Route: 065
  13. ZOMETA [Concomitant]
     Route: 042
  14. METHYCOBAL [Concomitant]
     Route: 065

REACTIONS (1)
  - Anaphylactic shock [Recovered/Resolved]
